FAERS Safety Report 4522220-8 (Version None)
Quarter: 2004Q4

REPORT INFORMATION
  Report Type: 
  Country: None (occurrence: None)
  Receive Date: 20041209
  Receipt Date: 20041129
  Transmission Date: 20050328
  Serious: Yes (Other)
  Sender: FDA-Public Use
  Company Number: PHNU2004DE04028

PATIENT
  Sex: Female

DRUGS (1)
  1. LOCOL [Suspect]
     Dosage: 80 MG, QD
     Route: 048
     Dates: start: 20040601, end: 20041108

REACTIONS (1)
  - MACULAR DEGENERATION [None]
